FAERS Safety Report 8022525-2 (Version None)
Quarter: 2012Q1

REPORT INFORMATION
  Report Type: 
  Country: None (occurrence: None)
  Receive Date: 20120104
  Receipt Date: 20111221
  Transmission Date: 20120608
  Serious: Yes (Other)
  Sender: FDA-Public Use
  Company Number: US-GLAXOSMITHKLINE-A0903194A

PATIENT
  Sex: Female

DRUGS (1)
  1. AVANDIA [Suspect]
     Indication: DIABETES MELLITUS
     Route: 048

REACTIONS (11)
  - MOVEMENT DISORDER [None]
  - HYPOAESTHESIA [None]
  - VARICES OESOPHAGEAL [None]
  - ELECTROCARDIOGRAM T WAVE INVERSION [None]
  - CEREBROVASCULAR ACCIDENT [None]
  - ILL-DEFINED DISORDER [None]
  - ECONOMIC PROBLEM [None]
  - CHEST PAIN [None]
  - OEDEMA PERIPHERAL [None]
  - CELLULITIS [None]
  - TREATMENT NONCOMPLIANCE [None]
